FAERS Safety Report 9665254 (Version 1)
Quarter: 2013Q4

REPORT INFORMATION
  Report Type: Report from Study
  Country: US (occurrence: US)
  Receive Date: 20131101
  Receipt Date: 20131101
  Transmission Date: 20140711
  Serious: Yes (Death)
  Sender: FDA-Public Use
  Company Number: US-ROCHE-1297240

PATIENT
  Age: 63 Year
  Sex: Female
  Weight: 67.5 kg

DRUGS (2)
  1. BEVACIZUMAB [Suspect]
     Indication: GLIOBLASTOMA MULTIFORME
     Dosage: ON DAY 1 OF EACH CYCLE, CYCLE: 14 DAYS, 10 MG/KG, LAST DOSE ADMINISTERED: 15/OCT/2013.
     Route: 042
     Dates: start: 20130917
  2. BLINDED DASATINIB [Suspect]
     Indication: GLIOBLASTOMA MULTIFORME
     Dosage: LAST DOSE ADMINISTERED: 17/OCT/2013, CYCLE: 1 - 14 DAYS.
     Route: 048
     Dates: start: 20130917, end: 20131017

REACTIONS (1)
  - Death [Fatal]
